FAERS Safety Report 11221101 (Version 1)
Quarter: 2015Q2

REPORT INFORMATION
  Report Type: Spontaneous
  Country: FR (occurrence: FR)
  Receive Date: 20150626
  Receipt Date: 20150626
  Transmission Date: 20150821
  Serious: Yes (Hospitalization)
  Sender: FDA-Public Use
  Company Number: FR-HOSPIRA-2911540

PATIENT
  Age: 79 Year
  Sex: Male

DRUGS (1)
  1. DOCETAXEL HOSPIRA [Suspect]
     Active Substance: DOCETAXEL
     Indication: PROSTATE CANCER
     Dates: start: 20140625, end: 20150304

REACTIONS (5)
  - Capillary leak syndrome [Unknown]
  - Oedema peripheral [Recovering/Resolving]
  - Pleural effusion [Recovered/Resolved]
  - Anaemia [Unknown]
  - Asthenia [Not Recovered/Not Resolved]

NARRATIVE: CASE EVENT DATE: 201406
